FAERS Safety Report 5878583-4 (Version None)
Quarter: 2008Q3

REPORT INFORMATION
  Report Type: 
  Country: None (occurrence: None)
  Receive Date: 20080909
  Receipt Date: 20080826
  Transmission Date: 20090109
  Serious: Yes (Hospitalization)
  Sender: FDA-Public Use
  Company Number: CAP08000239

PATIENT
  Age: 75 Year
  Sex: Female

DRUGS (4)
  1. ACTONEL [Suspect]
     Indication: OSTEOPOROSIS
     Dosage: 35 MG ONCE WEEKLY, ORAL
     Route: 048
     Dates: start: 20060101, end: 20071201
  2. ACTONEL [Suspect]
     Indication: OSTEOPOROSIS
     Dosage: 75 MG TWO CONSECUTIVE DAYS MONTHLY, ORAL
     Route: 048
     Dates: start: 20071201, end: 20080501
  3. TYLENOL /00020001/ (PARACETAMOL) [Concomitant]
  4. EFFEXOR /01233801/ (VENLAFAXINE) [Concomitant]

REACTIONS (4)
  - CONDITION AGGRAVATED [None]
  - ECZEMA [None]
  - LEUKOCYTOCLASTIC VASCULITIS [None]
  - PNEUMONIA PNEUMOCOCCAL [None]
